FAERS Safety Report 22198887 (Version 1)
Quarter: 2023Q2

REPORT INFORMATION
  Report Type: Spontaneous
  Country: US (occurrence: US)
  Receive Date: 20230411
  Receipt Date: 20230411
  Transmission Date: 20230721
  Serious: No
  Sender: FDA-Public Use
  Company Number: US-BAUSCH-BL-2023-005457

PATIENT
  Sex: Male

DRUGS (2)
  1. MESTINON [Suspect]
     Active Substance: PYRIDOSTIGMINE BROMIDE
     Indication: Myasthenia gravis
     Route: 065
  2. SOLIRIS [Suspect]
     Active Substance: ECULIZUMAB
     Indication: Myasthenia gravis
     Dosage: 10MG/ML STARTED 3 YEARS AGO
     Route: 065
     Dates: start: 2020

REACTIONS (8)
  - Restless legs syndrome [Unknown]
  - Muscle twitching [Unknown]
  - Formication [Recovered/Resolved]
  - Muscle discomfort [Unknown]
  - Arthralgia [Unknown]
  - Myalgia [Unknown]
  - Insomnia [Unknown]
  - Muscle spasms [Unknown]

NARRATIVE: CASE EVENT DATE: 20220101
